FAERS Safety Report 8288277-6 (Version None)
Quarter: 2012Q2

REPORT INFORMATION
  Report Type: 
  Country: None (occurrence: None)
  Receive Date: 20120416
  Receipt Date: 20120124
  Transmission Date: 20120825
  Serious: Yes (Death)
  Sender: FDA-Public Use
  Company Number: PHHO2011JP021438

PATIENT
  Sex: Male
  Weight: 72 kg

DRUGS (59)
  1. SLOW-K [Suspect]
     Dosage: 600 MG, UNK
     Route: 048
     Dates: start: 20100726
  2. WARFARIN SODIUM [Suspect]
     Indication: THROMBOPHLEBITIS
     Dosage: 2 MG, QD
     Route: 048
     Dates: start: 20110301, end: 20110601
  3. GLYBURIDE [Suspect]
     Dosage: 10 MG, QD
     Dates: start: 20090619, end: 20110414
  4. HIRUDOID [Suspect]
     Indication: RASH
     Dosage: UNK
     Dates: start: 20110714
  5. LIDOMEX [Suspect]
     Indication: RASH
     Dosage: UNK
     Dates: start: 20081118
  6. RIBOFLAVIN TAB [Suspect]
     Indication: RASH
     Dosage: 60 MG, UNK
     Route: 048
     Dates: start: 20081118
  7. RINDERON-VG [Suspect]
     Indication: RASH
     Dosage: UNK
     Dates: start: 20081118
  8. UBIDECARENONE [Suspect]
     Indication: OEDEMA PERIPHERAL
     Dosage: 30 MG, UNK
     Route: 048
     Dates: start: 20081118
  9. GLIMICRON [Concomitant]
     Dosage: 2 DF, QD
     Dates: start: 20040309
  10. WARFARIN SODIUM [Suspect]
     Dosage: 2 MG, UNK
     Route: 048
     Dates: start: 20110714
  11. GLYBURIDE [Suspect]
     Dosage: 7.5 MG, QD
     Dates: start: 20090515, end: 20090618
  12. GLYBURIDE [Suspect]
     Dosage: 2.5 MG, UNK
     Route: 048
     Dates: start: 20110715
  13. CANDESARTAN CILEXETIL [Suspect]
     Indication: HYPERTENSION
     Dosage: 1.5 DF, QD
     Dates: start: 20040101, end: 20040308
  14. CONIEL [Suspect]
     Dosage: 4 MG, QD
     Dates: start: 20070925, end: 20071021
  15. KARY UNI [Suspect]
     Indication: CATARACT
     Dosage: UNK
     Dates: start: 20101116
  16. NESPO [Concomitant]
     Dosage: 2 DF, UNK
  17. LOXOPROFEN [Suspect]
     Indication: LUMBAR SPINAL STENOSIS
     Dosage: 180 MG, UNK
     Route: 048
     Dates: start: 20081118
  18. GLYBURIDE [Suspect]
     Indication: TYPE 2 DIABETES MELLITUS
     Dosage: 5 MG, QD
     Dates: start: 20080828, end: 20090514
  19. ASPIRIN [Suspect]
     Indication: CAROTID ARTERIOSCLEROSIS
     Dosage: 100 MG, QD
     Dates: start: 20041012
  20. LASIX [Suspect]
     Dosage: 60 MG, QD
     Route: 048
     Dates: start: 20091214, end: 20100112
  21. CRESTOR [Suspect]
     Indication: HYPERLIPIDAEMIA
     Dosage: 2.5 MG, UNK
     Route: 048
     Dates: start: 20080526
  22. PYDOXAL [Suspect]
     Dosage: 90 MG, UNK
     Route: 048
     Dates: start: 20081118
  23. LIMAPROST [Suspect]
     Indication: OSTEOARTHRITIS
     Dosage: 15 UG, UNK
     Route: 048
     Dates: start: 20081118
  24. VITALFA [Suspect]
     Indication: OSTEOARTHRITIS
     Dosage: UNK
     Dates: start: 20081118
  25. LIPITOR [Concomitant]
     Dosage: 10 MG, QD
     Dates: start: 20040309
  26. GLIMICRON [Concomitant]
     Dosage: 1 DF, QD
     Dates: start: 20040615
  27. LASIX [Suspect]
     Dosage: 40 MG, QD
     Dates: start: 20091021, end: 20091213
  28. ALDECIN-AQ- [Suspect]
     Indication: SEASONAL ALLERGY
     Dosage: UNK
     Dates: start: 20110916
  29. UREPEARL [Suspect]
     Indication: TINEA INFECTION
     Dosage: UNK
     Dates: start: 20081118
  30. GENTAMICIN SULFATE [Suspect]
     Indication: RASH
     Dosage: UNK
     Dates: start: 20081118
  31. ANTEBATE [Suspect]
     Indication: RASH
     Dosage: UNK
     Dates: start: 20081118
  32. ARTZ [Suspect]
     Indication: OSTEOARTHRITIS
     Dosage: UNK
     Dates: start: 20081118
  33. HACHIMIJIO-GAN [Suspect]
     Indication: POLLAKIURIA
     Dosage: 6.0 G, UNK
     Route: 048
     Dates: start: 20110406
  34. NESPO [Concomitant]
     Indication: NEPHROGENIC ANAEMIA
     Dosage: 1 DF, UNK
     Dates: start: 20111130
  35. METFORMIN HCL [Concomitant]
     Dosage: 500 MG, QD
     Dates: start: 20110812
  36. GLYBURIDE [Suspect]
     Dosage: 5.0 MG, QD
     Dates: start: 20110415, end: 20110714
  37. CANDESARTAN CILEXETIL [Suspect]
     Dosage: 12 MG, QD
     Dates: start: 20030309, end: 20111115
  38. CONIEL [Suspect]
     Dosage: 8 MG, QD
     Dates: start: 20071022
  39. LASIX [Suspect]
     Dosage: 80 MG, UNK
     Route: 048
     Dates: start: 20100113, end: 20100725
  40. METFORMIN HCL [Concomitant]
     Indication: TYPE 2 DIABETES MELLITUS
     Dosage: 250 MG
     Route: 048
     Dates: start: 20090918
  41. KREMEZIN [Concomitant]
     Dosage: 4 G, UNK
     Route: 048
     Dates: start: 20111116, end: 20111116
  42. LASIX [Suspect]
     Indication: HYPERTENSION
     Dosage: 10 MG, QD
     Route: 048
     Dates: start: 20040101, end: 20050110
  43. LASIX [Suspect]
     Dosage: 40 MG, UNK
     Route: 048
     Dates: start: 20100726, end: 20100928
  44. LASIX [Suspect]
     Dosage: 40 MG, UNK
     Route: 048
     Dates: start: 20101029
  45. MYCOSPOR [Suspect]
     Indication: TINEA INFECTION
     Dosage: UNK
     Dates: start: 20081118
  46. MECOBALAMIN [Suspect]
     Indication: OSTEOARTHRITIS
     Dosage: 1500 UG, UNK
     Route: 048
     Dates: start: 20081118
  47. URIEF [Suspect]
     Indication: POLLAKIURIA
     Dosage: 8 MG, UNK
     Route: 048
     Dates: start: 20110406
  48. PLACEBO [Suspect]
     Indication: CARDIOVASCULAR DISORDER
     Dosage: UNK
     Route: 048
     Dates: start: 20081215
  49. LASIX [Suspect]
     Dosage: 20 MG, UNK
     Route: 048
     Dates: start: 20100928, end: 20101028
  50. FERROUS SULFATE TAB [Suspect]
     Indication: IRON DEFICIENCY ANAEMIA
     Dosage: 105 MG, UNK
     Route: 048
     Dates: start: 20081118
  51. MIGLITOL [Suspect]
     Indication: TYPE 2 DIABETES MELLITUS
     Dosage: 100 MG, UNK
     Route: 048
     Dates: start: 20100416
  52. LACMARZE [Suspect]
     Indication: GASTRITIS
     Dosage: 600 MG, UNK
     Route: 048
     Dates: start: 20081118
  53. ONON [Suspect]
     Indication: RHINITIS ALLERGIC
     Dosage: 450 MG, UNK
     Route: 048
     Dates: start: 20100416
  54. CANDESARTAN CILEXETIL [Suspect]
     Dosage: 8 MG, QD
     Route: 048
     Dates: start: 20111116
  55. CONIEL [Suspect]
     Indication: HYPERTENSION
     Dosage: 2 MG, QD
     Dates: start: 20041207, end: 20070924
  56. LASIX [Suspect]
     Indication: OEDEMA PERIPHERAL
     Dosage: 20 MG, QD
     Route: 048
     Dates: start: 20050111, end: 20091020
  57. OLOPATADINE HCL [Suspect]
     Indication: RHINITIS ALLERGIC
     Dosage: 10 MG, UNK
     Route: 048
     Dates: start: 20081118
  58. METFORMIN HCL [Concomitant]
     Dosage: 750 MG, QD
     Dates: start: 20091021
  59. GLIMICRON [Concomitant]
     Dosage: 80 MG, QD
     Dates: start: 20080627

REACTIONS (1)
  - MYOCARDIAL ISCHAEMIA [None]
